FAERS Safety Report 7684007-7 (Version None)
Quarter: 2011Q3

REPORT INFORMATION
  Report Type: 
  Country: None (occurrence: None)
  Receive Date: 20110815
  Receipt Date: 20110809
  Transmission Date: 20111222
  Serious: Yes (Life-Threatening, Other)
  Sender: FDA-Public Use
  Company Number: US-PFIZER INC-2011127365

PATIENT
  Age: 18 Year
  Sex: Female

DRUGS (1)
  1. BEXTRA [Suspect]
     Dosage: 1 DOSE

REACTIONS (1)
  - STEVENS-JOHNSON SYNDROME [None]
